FAERS Safety Report 16022991 (Version 3)
Quarter: 2019Q2

REPORT INFORMATION
  Report Type: Spontaneous
  Country: DE (occurrence: DE)
  Receive Date: 20190301
  Receipt Date: 20190405
  Transmission Date: 20190711
  Serious: Yes (Death, Hospitalization, Other)
  Sender: FDA-Public Use
  Company Number: DE-B.I. PHARMACEUTICALS,INC./RIDGEFIELD-2019-BI-009025

PATIENT
  Age: 76 Year
  Sex: Male
  Weight: 88 kg

DRUGS (2)
  1. MARCUMAR [Concomitant]
     Active Substance: PHENPROCOUMON
     Indication: ATRIAL FIBRILLATION
     Route: 065
  2. JARDIANCE [Suspect]
     Active Substance: EMPAGLIFLOZIN
     Indication: TYPE 2 DIABETES MELLITUS
     Route: 048
     Dates: start: 20180503, end: 20181107

REACTIONS (10)
  - Genital infection fungal [Unknown]
  - Respiratory failure [Fatal]
  - Pneumonia [Unknown]
  - Pollakiuria [Unknown]
  - Dysuria [Unknown]
  - Benign prostatic hyperplasia [Unknown]
  - Balanoposthitis [Unknown]
  - Fournier^s gangrene [Unknown]
  - Intensive care unit acquired weakness [Unknown]
  - Sepsis [Unknown]

NARRATIVE: CASE EVENT DATE: 20181129
